FAERS Safety Report 4420819-0 (Version None)
Quarter: 2004Q3

REPORT INFORMATION
  Report Type: 
  Country: None (occurrence: None)
  Receive Date: 20040809
  Receipt Date: 20040608
  Transmission Date: 20050211
  Serious: No
  Sender: FDA-Public Use
  Company Number: US-GLAXOSMITHKLINE-A0513828A

PATIENT
  Age: 62 Year
  Sex: Male

DRUGS (11)
  1. PAXIL [Suspect]
     Dosage: 20MG PER DAY
     Route: 048
     Dates: start: 20010201
  2. LANTUS [Concomitant]
  3. HUMALOG [Concomitant]
  4. MAVIK [Concomitant]
  5. NORVASC [Concomitant]
  6. TORSEMIDE [Concomitant]
  7. METFORMIN HCL [Concomitant]
  8. DIGOXIN [Concomitant]
  9. SINGULAIR [Concomitant]
  10. SULINDAC [Concomitant]
  11. PREDNISONE TAB [Concomitant]

REACTIONS (1)
  - ERECTILE DYSFUNCTION [None]
